FAERS Safety Report 25345601 (Version 2)
Quarter: 2025Q3

REPORT INFORMATION
  Report Type: Spontaneous
  Country: US (occurrence: US)
  Receive Date: 20250522
  Receipt Date: 20250810
  Transmission Date: 20251021
  Serious: No
  Sender: ALEXION PHARMACEUTICALS
  Company Number: US-AstraZeneca-CH-00874079AP

PATIENT
  Sex: Male

DRUGS (1)
  1. SYMBICORT [Suspect]
     Active Substance: BUDESONIDE\FORMOTEROL FUMARATE DIHYDRATE
     Indication: Dyspnoea
     Dosage: 80 MICROGRAM, BID
     Route: 065
     Dates: start: 202505

REACTIONS (4)
  - Incorrect dose administered by device [Unknown]
  - Dyspnoea [Unknown]
  - Nervousness [Unknown]
  - Wrong technique in product usage process [Unknown]
